FAERS Safety Report 14482152 (Version 1)
Quarter: 2018Q1

REPORT INFORMATION
  Report Type: Spontaneous
  Country: US (occurrence: US)
  Receive Date: 20180202
  Receipt Date: 20180202
  Transmission Date: 20180509
  Serious: Yes (Hospitalization)
  Sender: FDA-Public Use
  Company Number: US-ACTELION-A-NJ2018-166686

PATIENT
  Age: 70 Year
  Sex: Male

DRUGS (13)
  1. UPTRAVI [Suspect]
     Active Substance: SELEXIPAG
     Indication: PULMONARY ARTERIAL HYPERTENSION
     Route: 048
  2. AMBRISENTAN [Suspect]
     Active Substance: AMBRISENTAN
     Indication: PULMONARY ARTERIAL HYPERTENSION
     Dosage: 10 MG, QD
     Route: 065
  3. METFORMIN [Concomitant]
     Active Substance: METFORMIN HYDROCHLORIDE
  4. REMODULIN [Concomitant]
     Active Substance: TREPROSTINIL
  5. CLARITIN [Concomitant]
     Active Substance: LORATADINE
  6. SILDENAFIL. [Concomitant]
     Active Substance: SILDENAFIL
     Dosage: 20 MG, TID
  7. JANTOVEN [Concomitant]
     Active Substance: WARFARIN SODIUM
  8. ADCIRCA [Concomitant]
     Active Substance: TADALAFIL
  9. SPIRONOLACTONE. [Concomitant]
     Active Substance: SPIRONOLACTONE
  10. LASIX [Concomitant]
     Active Substance: FUROSEMIDE
  11. LISINOPRIL. [Concomitant]
     Active Substance: LISINOPRIL
  12. SILDENAFIL. [Concomitant]
     Active Substance: SILDENAFIL
     Dosage: 40 MG, TID
  13. METOPROLOL. [Concomitant]
     Active Substance: METOPROLOL

REACTIONS (6)
  - Fall [Unknown]
  - Gait inability [Unknown]
  - Syncope [Unknown]
  - Dizziness [Unknown]
  - Dyspnoea [Unknown]
  - Pulmonary hypertension [Unknown]

NARRATIVE: CASE EVENT DATE: 20171203
